FAERS Safety Report 21242134 (Version 1)
Quarter: 2022Q3

REPORT INFORMATION
  Report Type: Spontaneous
  Country: US (occurrence: US)
  Receive Date: 20220823
  Receipt Date: 20220823
  Transmission Date: 20221027
  Serious: Yes (Other)
  Sender: FDA-Public Use
  Company Number: US-CHEPLA-2022007088

PATIENT
  Age: 66 Year
  Sex: Male

DRUGS (1)
  1. GANCICLOVIR [Suspect]
     Active Substance: GANCICLOVIR
     Indication: Human herpesvirus 6 infection
     Dosage: FOR 3 WEEKS

REACTIONS (4)
  - Generalised tonic-clonic seizure [Unknown]
  - Agitation [Unknown]
  - Paranoia [Unknown]
  - Product use in unapproved indication [Recovered/Resolved]
